FAERS Safety Report 13747443 (Version 2)
Quarter: 2017Q3

REPORT INFORMATION
  Report Type: Report from Study
  Country: US (occurrence: US)
  Receive Date: 20170712
  Receipt Date: 20170814
  Transmission Date: 20171127
  Serious: Yes (Death, Hospitalization)
  Sender: FDA-Public Use
  Company Number: US-ALLERGAN-1728993US

PATIENT
  Age: 89 Year
  Sex: Male

DRUGS (1)
  1. LIPASE 10,000USP;AMYLASE 55,000USP;PROTEASE 34,000USP CAP [Suspect]
     Active Substance: AMYLASE\LIPASE\PROTEASE
     Indication: PANCREATIC CARCINOMA
     Dosage: UNK
     Route: 048
     Dates: start: 201602

REACTIONS (8)
  - Malaise [Unknown]
  - Dysuria [Unknown]
  - Abdominal pain [Unknown]
  - Death [Fatal]
  - Weight decreased [Unknown]
  - Intestinal obstruction [Recovered/Resolved]
  - Asthenia [Unknown]
  - Diarrhoea [Recovered/Resolved]

NARRATIVE: CASE EVENT DATE: 2016
